FAERS Safety Report 20138572 (Version 1)
Quarter: 2021Q4

REPORT INFORMATION
  Report Type: Report from Study
  Country: US (occurrence: None)
  Receive Date: 20211202
  Receipt Date: 20211202
  Transmission Date: 20220303
  Serious: Yes (Death, Life-Threatening)
  Sender: FDA-Public Use
  Company Number: US-ROCHE-2184321

PATIENT
  Age: 20 Year
  Sex: Female
  Weight: 65 kg

DRUGS (19)
  1. PIRFENIDONE [Suspect]
     Active Substance: PIRFENIDONE
     Indication: Complications of transplanted lung
     Route: 048
     Dates: start: 20180820, end: 20180902
  2. ACETAMINOPHEN [Concomitant]
     Active Substance: ACETAMINOPHEN
     Route: 048
  3. AZITHROMYCIN [Concomitant]
     Active Substance: AZITHROMYCIN
     Route: 048
  4. BENZONATATE [Concomitant]
     Active Substance: BENZONATATE
     Route: 048
  5. BENZOYL PEROXIDE [Concomitant]
     Active Substance: BENZOYL PEROXIDE
     Dosage: TOPICAL WASH
  6. CALCIUM CARBONATE [Concomitant]
     Active Substance: CALCIUM CARBONATE
     Route: 048
  7. CHOLECALCIFEROL [Concomitant]
     Active Substance: CHOLECALCIFEROL
     Route: 048
  8. DAPSONE [Concomitant]
     Active Substance: DAPSONE
     Route: 048
  9. DOCQLACE [Concomitant]
     Active Substance: DOCUSATE SODIUM
     Route: 048
  10. GABAPENTIN [Concomitant]
     Active Substance: GABAPENTIN
     Route: 048
  11. IPRATROPIUM [Concomitant]
     Active Substance: IPRATROPIUM
     Dosage: NASAL SPRAY
  12. MOMETASONE [Concomitant]
     Active Substance: MOMETASONE
     Dosage: 50 MCG
  13. MYFORTIC [Concomitant]
     Active Substance: MYCOPHENOLATE SODIUM
     Route: 048
  14. ONDANSETRON [Concomitant]
     Active Substance: ONDANSETRON
     Route: 048
  15. PREDNISONE [Concomitant]
     Active Substance: PREDNISONE
     Route: 048
  16. PREVACID [Concomitant]
     Active Substance: LANSOPRAZOLE
     Route: 048
  17. TACROLIMUS [Concomitant]
     Active Substance: TACROLIMUS
     Dosage: 1 MG AM/1.5 MG PM
  18. TIOTROPIUM [Concomitant]
     Active Substance: TIOTROPIUM
     Dosage: 18 MCGS
  19. VALGANCICLOVIR [Concomitant]
     Active Substance: VALGANCICLOVIR
     Route: 048

REACTIONS (6)
  - Respiratory failure [Unknown]
  - Pneumonia [Recovered/Resolved]
  - Sepsis [Fatal]
  - Intestinal ischaemia [Fatal]
  - Right ventricular failure [Fatal]
  - Transplant dysfunction [Fatal]

NARRATIVE: CASE EVENT DATE: 20180827
